FAERS Safety Report 4915982-9 (Version None)
Quarter: 2006Q1

REPORT INFORMATION
  Report Type: 
  Country: None (occurrence: None)
  Receive Date: 20060214
  Receipt Date: 20060125
  Transmission Date: 20060701
  Serious: Yes (Life-Threatening, Hospitalization)
  Sender: FDA-Public Use
  Company Number: USA0510110217

PATIENT
  Age: 45 Year
  Sex: Male
  Weight: 123.4 kg

DRUGS (1)
  1. STRATTERA [Suspect]
     Dosage: 100 MG, DAILY (1/D)
     Dates: start: 20030101

REACTIONS (1)
  - MYOCARDIAL INFARCTION [None]
